FAERS Safety Report 8555225-0 (Version None)
Quarter: 2012Q3

REPORT INFORMATION
  Report Type: 
  Country: None (occurrence: None)
  Receive Date: 20120731
  Receipt Date: 20120716
  Transmission Date: 20120928
  Serious: No
  Sender: FDA-Public Use
  Company Number: US-009507513-1207USA006227

PATIENT

DRUGS (2)
  1. AZASITE [Suspect]
     Dosage: 2 GTT, QD
  2. AZASITE [Suspect]
     Indication: BLEPHARITIS
     Dosage: 2 GTT, BID
     Route: 047
     Dates: start: 20120709

REACTIONS (2)
  - INCORRECT DRUG ADMINISTRATION DURATION [None]
  - EYE IRRITATION [None]
